FAERS Safety Report 8417308-5 (Version None)
Quarter: 2012Q2

REPORT INFORMATION
  Report Type: 
  Country: None (occurrence: None)
  Receive Date: 20120606
  Receipt Date: 20120529
  Transmission Date: 20120825
  Serious: Yes (Other)
  Sender: FDA-Public Use
  Company Number: US-ELI_LILLY_AND_COMPANY-US201205010292

PATIENT
  Sex: Female

DRUGS (7)
  1. ASPIRIN [Concomitant]
  2. XANAX [Concomitant]
  3. COREG [Concomitant]
  4. EFFIENT [Suspect]
     Dosage: 10 MG, QD
  5. LISINOPRIL [Concomitant]
     Dosage: UNK
  6. NITROSTAT [Concomitant]
  7. PRAVACHOL [Concomitant]

REACTIONS (1)
  - TIBIA FRACTURE [None]
